FAERS Safety Report 22398488 (Version 1)
Quarter: 2023Q2

REPORT INFORMATION
  Report Type: Spontaneous
  Country: GB (occurrence: None)
  Receive Date: 20230602
  Receipt Date: 20230602
  Transmission Date: 20230721
  Serious: Yes (Disabling, Other)
  Sender: FDA-Public Use
  Company Number: 2023A121498

PATIENT
  Age: 86 Year
  Sex: Male
  Weight: 85 kg

DRUGS (21)
  1. DAPAGLIFLOZIN [Suspect]
     Active Substance: DAPAGLIFLOZIN
     Indication: Cardiac failure
     Dosage: 10
     Dates: start: 20230515
  2. AMIODARONE [Concomitant]
     Active Substance: AMIODARONE
     Dosage: 1
     Dates: start: 20221102
  3. BETAHISTINE [Concomitant]
     Active Substance: BETAHISTINE
     Dosage: 1 TO HELP REDUC...
     Dates: start: 20221129
  4. BETAMETHASONE VALERATE [Concomitant]
     Active Substance: BETAMETHASONE VALERATE
     Dosage: APPLY SPARINGLY TO THE SCALP OR LESS IF P...
     Dates: start: 20221129
  5. BETNOVATE [Concomitant]
     Active Substance: BETAMETHASONE
     Dosage: 1 UNK, APPLY TO THE AFFECTED AREAS (MONDA...
     Dates: start: 20221102
  6. BISOPROLOL [Concomitant]
     Active Substance: BISOPROLOL
     Dosage: 1 UNK
     Dates: start: 20221107
  7. CIPROFLOXACIN [Concomitant]
     Active Substance: CIPROFLOXACIN
     Dosage: INSTIL THE CONTENTS OF ONE SINGLE AMPOULE INTO ...
     Dates: start: 20230511
  8. EDOXABAN [Concomitant]
     Active Substance: EDOXABAN
     Dosage: 1 UNK TO HELP PREVENT BLOO...
     Dates: start: 20221102
  9. FINASTERIDE [Concomitant]
     Active Substance: FINASTERIDE
     Dosage: 1 UNK
     Dates: start: 20221102
  10. FOLIC ACID [Concomitant]
     Active Substance: FOLIC ACID
     Dosage: 1 UNK TAKE ONE DAILY
     Dates: start: 20221129
  11. FUROSEMIDE [Concomitant]
     Active Substance: FUROSEMIDE
     Dosage: 2 UNK, EACH MORNING AND ONE AT LUNCH
     Dates: start: 20221102
  12. FYBOGEL [Concomitant]
     Active Substance: HERBALS\PLANTAGO OVATA SEED
     Dosage: 1 UNK, TAKE ONE TWICE A DAY
     Dates: start: 20221102
  13. NITROGLYCERIN [Concomitant]
     Active Substance: NITROGLYCERIN
     Dosage: SPRAY 1-2 DOSES UNDER TONGUE AND THEN CLOSE MOU...
     Route: 060
     Dates: start: 20221102
  14. LANSOPRAZOLE [Concomitant]
     Active Substance: LANSOPRAZOLE
     Dosage: 1 UNK
     Dates: start: 20221129
  15. POLYETHYLENE GLYCOLS [Concomitant]
     Active Substance: POLYETHYLENE GLYCOLS
     Dosage: 1 UNK IN THE MORNING
     Dates: start: 20221129
  16. CARBOXYMETHYLCELLULOSE SODIUM\GLYCERIN [Concomitant]
     Active Substance: CARBOXYMETHYLCELLULOSE SODIUM\GLYCERIN
     Dosage: USE AS DIRECTED
     Dates: start: 20221102, end: 20230301
  17. ACETAMINOPHEN [Concomitant]
     Active Substance: ACETAMINOPHEN
     Dosage: 1 UNK, UP TO 4 TIMES/DAY
     Dates: start: 20221212
  18. RAMIPRIL [Concomitant]
     Active Substance: RAMIPRIL
     Dosage: 1 UNK, AT 6PM
     Dates: start: 20221102
  19. SPIRONOLACTONE [Concomitant]
     Active Substance: SPIRONOLACTONE
     Dosage: 1 UNK, EACH MORNING
     Dates: start: 20221102
  20. TAMSULOSIN HYDROCHLORIDE [Concomitant]
     Active Substance: TAMSULOSIN HYDROCHLORIDE
     Dosage: 1 UNK AT NIGHT
     Dates: start: 20221102
  21. PARAFFIN [Concomitant]
     Active Substance: PARAFFIN
     Indication: Dry skin
     Dosage: APPLY
     Dates: start: 20221102

REACTIONS (3)
  - Joint swelling [Recovering/Resolving]
  - Peripheral swelling [Unknown]
  - Paraesthesia [Unknown]
